FAERS Safety Report 14767714 (Version 1)
Quarter: 2018Q2

REPORT INFORMATION
  Report Type: Spontaneous
  Country: US (occurrence: US)
  Receive Date: 20180410
  Receipt Date: 20180410
  Transmission Date: 20180711
  Serious: No
  Sender: FDA-Public Use
  Company Number: None

PATIENT
  Age: 29 Year
  Sex: Female
  Weight: 67.5 kg

DRUGS (2)
  1. TRI-LO-SPRINTEC [Suspect]
     Active Substance: ETHINYL ESTRADIOL\NORGESTIMATE
     Indication: CONTRACEPTION
     Dosage: ?          QUANTITY:28 TABLET(S);?
     Route: 048
     Dates: start: 20170102, end: 20170801
  2. TRI LO MARZIA [Concomitant]

REACTIONS (4)
  - Impaired work ability [None]
  - Product substitution issue [None]
  - Migraine [None]
  - Educational problem [None]

NARRATIVE: CASE EVENT DATE: 20170801
